FAERS Safety Report 13791742 (Version 1)
Quarter: 2017Q3

REPORT INFORMATION
  Report Type: Spontaneous
  Country: US (occurrence: US)
  Receive Date: 20170725
  Receipt Date: 20170725
  Transmission Date: 20171127
  Serious: Yes (Death, Hospitalization)
  Sender: FDA-Public Use
  Company Number: US-IGSA-SR10005085

PATIENT
  Age: 16 Year
  Sex: Female

DRUGS (1)
  1. GAMUNEX-C [Suspect]
     Active Substance: HUMAN IMMUNOGLOBULIN G
     Indication: IMMUNODEFICIENCY COMMON VARIABLE
     Dosage: 21 G, Q.4WK.
     Route: 042
     Dates: start: 20161128, end: 20170713

REACTIONS (2)
  - Brain injury [Fatal]
  - Seizure [Fatal]

NARRATIVE: CASE EVENT DATE: 201707
